FAERS Safety Report 6313975-0 (Version None)
Quarter: 2009Q3

REPORT INFORMATION
  Report Type: 
  Country: None (occurrence: None)
  Receive Date: 20090818
  Receipt Date: 20090811
  Transmission Date: 20100115
  Serious: Yes (Death, Hospitalization)
  Sender: FDA-Public Use
  Company Number: GR-ABBOTT-09P-066-0499114-00

PATIENT
  Age: 68 Year
  Sex: Female
  Weight: 35 kg

DRUGS (10)
  1. ZEMPLAR [Suspect]
     Indication: HYPERPARATHYROIDISM SECONDARY
     Route: 042
     Dates: start: 20070325, end: 20090115
  2. RETACRIT [Concomitant]
     Indication: DRUG USE FOR UNKNOWN INDICATION
     Dosage: 4000 X 3
  3. VENOFER [Concomitant]
     Indication: DRUG USE FOR UNKNOWN INDICATION
  4. SUPERAMINE [Concomitant]
     Indication: DRUG USE FOR UNKNOWN INDICATION
  5. CERNEVIT-12 [Concomitant]
     Indication: DRUG USE FOR UNKNOWN INDICATION
  6. FORSENOL 750 MG [Concomitant]
     Indication: DRUG USE FOR UNKNOWN INDICATION
  7. FILICINE [Concomitant]
     Indication: DRUG USE FOR UNKNOWN INDICATION
  8. ISCOVER [Concomitant]
     Indication: DRUG USE FOR UNKNOWN INDICATION
  9. ACCUPRON [Concomitant]
     Indication: DRUG USE FOR UNKNOWN INDICATION
  10. LERCADIP [Concomitant]
     Indication: DRUG USE FOR UNKNOWN INDICATION

REACTIONS (2)
  - GASTRIC HAEMORRHAGE [None]
  - HAEMATEMESIS [None]
